FAERS Safety Report 7974566-9 (Version None)
Quarter: 2011Q4

REPORT INFORMATION
  Report Type: 
  Country: None (occurrence: None)
  Receive Date: 20111213
  Receipt Date: 20111201
  Transmission Date: 20120403
  Serious: Yes (Hospitalization, Other)
  Sender: FDA-Public Use
  Company Number: US-ELI_LILLY_AND_COMPANY-US201102007188

PATIENT
  Sex: Male

DRUGS (14)
  1. LASIX [Concomitant]
     Dosage: 40 MG, UNK
  2. FORTEO [Suspect]
     Dosage: 20 UG, QD
     Route: 065
  3. METOPROLOL SUCCINATE [Concomitant]
     Dosage: 25 MG, UNK
  4. LASIX [Concomitant]
     Dosage: 20 MG, UNK
  5. FORTEO [Suspect]
     Indication: OSTEOPOROSIS
     Dosage: 20 UG, DAILY (1/D)
     Route: 065
     Dates: start: 20110201
  6. ASPIRIN [Concomitant]
     Indication: ANTICOAGULANT THERAPY
     Dosage: 325 MG, UNK
  7. LISINOPRIL [Concomitant]
     Dosage: 2.5 MG, UNK
  8. FORTEO [Suspect]
     Dosage: 20 UG, QD
     Route: 065
  9. FORTEO [Suspect]
     Dosage: 20 UG, QD
     Route: 065
  10. PLAVIX [Concomitant]
     Dosage: 75 MG, UNK
  11. SIMVASTATIN [Concomitant]
     Dosage: 40 MG, UNK
  12. FORTEO [Suspect]
     Dosage: 20 UG, QD
     Route: 065
  13. CENTRUM SILVER [Concomitant]
     Dosage: UNK, QD
  14. VITAMIN D [Concomitant]
     Dosage: 50000 IU, WEEKLY (1/W)

REACTIONS (8)
  - HOSPITALISATION [None]
  - DYSPNOEA [None]
  - CARDIAC PACEMAKER INSERTION [None]
  - RESPIRATORY DISORDER [None]
  - DRUG DOSE OMISSION [None]
  - STENT PLACEMENT [None]
  - INJECTION SITE ERYTHEMA [None]
  - INJECTION SITE HAEMATOMA [None]
